FAERS Safety Report 6829084-8 (Version None)
Quarter: 2010Q3

REPORT INFORMATION
  Report Type: 
  Country: None (occurrence: None)
  Receive Date: 20100709
  Receipt Date: 20070228
  Transmission Date: 20110219
  Serious: No
  Sender: FDA-Public Use
  Company Number: US-PFIZER INC-2007009274

PATIENT
  Sex: Female
  Weight: 62.14 kg

DRUGS (3)
  1. CHANTIX [Suspect]
     Indication: SMOKING CESSATION THERAPY
     Route: 048
     Dates: start: 20070122, end: 20070209
  2. ZYRTEC [Concomitant]
  3. PREVACID [Concomitant]
     Indication: DYSPEPSIA

REACTIONS (5)
  - DIZZINESS [None]
  - EYELID OEDEMA [None]
  - MIGRAINE [None]
  - NAUSEA [None]
  - VISUAL IMPAIRMENT [None]
